FAERS Safety Report 4906402-9 (Version None)
Quarter: 2006Q1

REPORT INFORMATION
  Report Type: 
  Country: None (occurrence: None)
  Receive Date: 20060209
  Receipt Date: 20060207
  Transmission Date: 20060701
  Serious: Yes (Other)
  Sender: FDA-Public Use
  Company Number: US-GLAXOSMITHKLINE-A0592647A

PATIENT
  Age: 85 Year
  Sex: Male

DRUGS (3)
  1. TAGAMET HB 200 [Suspect]
     Dosage: 200MG SINGLE DOSE
     Route: 048
     Dates: start: 20060206, end: 20060206
  2. ATENOLOL [Concomitant]
  3. DILTIAZEM HCL [Concomitant]

REACTIONS (9)
  - ABNORMAL DREAMS [None]
  - ASTHENIA [None]
  - DIARRHOEA [None]
  - HALLUCINATION [None]
  - INITIAL INSOMNIA [None]
  - MALAISE [None]
  - RESTLESSNESS [None]
  - SENSATION OF HEAVINESS [None]
  - SUFFOCATION FEELING [None]
